FAERS Safety Report 9158619 (Version 1)
Quarter: 2013Q1

REPORT INFORMATION
  Report Type: Spontaneous
  Country: US (occurrence: US)
  Receive Date: 20130312
  Receipt Date: 20130312
  Transmission Date: 20140127
  Serious: Yes (Other)
  Sender: FDA-Public Use
  Company Number: GXBR2013US000734

PATIENT
  Age: 0 Year
  Sex: Female
  Weight: 2.6 kg

DRUGS (3)
  1. ETHINYL ESTRADIOL AND LEVONORGESTREL [Suspect]
     Dosage: MATERNAL DOSE: 0.15MG LEVONORGESTREL/0.03MG ETHINYL ESTRADIOL QD
     Route: 064
     Dates: end: 20120521
  2. BACLOFEN [Suspect]
     Dosage: MATERNAL DOSE: 10MG TID
     Route: 064
     Dates: end: 20120521
  3. COPAXONE [Suspect]
     Dosage: MATERNAL DOSE: 10MG DAILY
     Route: 064
     Dates: end: 20120521

REACTIONS (3)
  - Premature baby [Unknown]
  - Foetal exposure during pregnancy [Unknown]
  - Pregnancy [None]
